FAERS Safety Report 9913885 (Version 1)
Quarter: 2014Q1

REPORT INFORMATION
  Report Type: Spontaneous
  Country: US (occurrence: None)
  Receive Date: 20140219
  Receipt Date: 20140219
  Transmission Date: 20141002
  Serious: Yes (Disabling)
  Sender: FDA-Public Use
  Company Number: None

PATIENT
  Age: 39 Year
  Sex: Female
  Weight: 67 kg

DRUGS (1)
  1. BOTOX [Suspect]
     Indication: SKIN COSMETIC PROCEDURE
     Dosage: INTO THE MUSCLE
     Route: 030
     Dates: start: 20130404

REACTIONS (16)
  - Anxiety [None]
  - Panic attack [None]
  - Insomnia [None]
  - Anhidrosis [None]
  - Dry eye [None]
  - Dry mouth [None]
  - Dysphagia [None]
  - Muscular weakness [None]
  - Visual impairment [None]
  - Headache [None]
  - Hypotension [None]
  - Paraesthesia [None]
  - Incontinence [None]
  - Raynaud^s phenomenon [None]
  - Alopecia [None]
  - Injection site hypoaesthesia [None]
